FAERS Safety Report 11523578 (Version 1)
Quarter: 2015Q3

REPORT INFORMATION
  Report Type: Spontaneous
  Country: US (occurrence: US)
  Receive Date: 20150918
  Receipt Date: 20150918
  Transmission Date: 20151125
  Serious: No
  Sender: FDA-Public Use
  Company Number: US-ROCHE-747445

PATIENT
  Sex: Male
  Weight: 74.8 kg

DRUGS (2)
  1. PEGASYS [Suspect]
     Active Substance: PEGINTERFERON ALFA-2A
     Indication: HEPATITIS C
     Route: 058
     Dates: start: 20100709, end: 20100928
  2. RIBASPHERE [Suspect]
     Active Substance: RIBAVIRIN
     Indication: HEPATITIS C
     Route: 048
     Dates: start: 20100709, end: 20100928

REACTIONS (7)
  - Back pain [Not Recovered/Not Resolved]
  - Drug ineffective [Unknown]
  - Depression [Unknown]
  - Weight increased [Unknown]
  - Fatigue [Unknown]
  - Asthenia [Unknown]
  - Micturition disorder [Unknown]
